FAERS Safety Report 20582865 (Version 1)
Quarter: 2022Q1

REPORT INFORMATION
  Report Type: Spontaneous
  Country: US (occurrence: US)
  Receive Date: 20220311
  Receipt Date: 20220311
  Transmission Date: 20220423
  Serious: No
  Sender: FDA-Public Use
  Company Number: US-JNJFOC-20220315487

PATIENT
  Age: 59 Year
  Sex: Female

DRUGS (2)
  1. ULTRAM [Suspect]
     Active Substance: TRAMADOL HYDROCHLORIDE
     Indication: Pain
     Dosage: 5-6 TIMES PER DAY
     Route: 065
  2. DURAGESIC [Suspect]
     Active Substance: FENTANYL
     Indication: Pain
     Route: 062

REACTIONS (1)
  - Therapy non-responder [Unknown]
